FAERS Safety Report 12237982 (Version 1)
Quarter: 2016Q2

REPORT INFORMATION
  Report Type: Spontaneous
  Country: US (occurrence: None)
  Receive Date: 20160404
  Receipt Date: 20160404
  Transmission Date: 20160815
  Serious: No
  Sender: FDA-Public Use
  Company Number: None

PATIENT
  Age: 21 Year
  Sex: Male

DRUGS (1)
  1. NOVOLOG [Suspect]
     Active Substance: INSULIN ASPART
     Indication: TYPE 1 DIABETES MELLITUS
     Dosage: 3 IU WITH MEALS SUBCUTANEOUS
     Route: 058

REACTIONS (2)
  - No therapeutic response [None]
  - Product quality issue [None]

NARRATIVE: CASE EVENT DATE: 20160308
